FAERS Safety Report 17908320 (Version 3)
Quarter: 2020Q3

REPORT INFORMATION
  Report Type: Spontaneous
  Country: DE (occurrence: DE)
  Receive Date: 20200617
  Receipt Date: 20200722
  Transmission Date: 20201103
  Serious: Yes (Hospitalization, Other)
  Sender: FDA-Public Use
  Company Number: DE-CELGENEUS-DEU-20200509057

PATIENT
  Age: 60 Year
  Sex: Male

DRUGS (15)
  1. LAXOBERAL [Concomitant]
     Active Substance: SODIUM PICOSULFATE
     Indication: CONSTIPATION PROPHYLAXIS
     Route: 048
     Dates: start: 20191118
  2. AZACITIDINE. [Suspect]
     Active Substance: AZACITIDINE
     Dosage: 60 MILLIGRAM/SQ. METER DAYS 1?5 OF WEEK 1 AND DAYS 1 AND 2 OF WEEK 2 OF EACH CYCLE
     Route: 058
     Dates: start: 20200427, end: 20200429
  3. AZACITIDINE. [Suspect]
     Active Substance: AZACITIDINE
     Dosage: 75 MILLIGRAM/SQ. METER DAYS 1?5 OF WEEK 1 AND DAYS 1 AND 2 OF WEEK 2 OF EACH CYCLE
     Route: 058
     Dates: start: 20200518
  4. AZACITIDINE. [Suspect]
     Active Substance: AZACITIDINE
     Dosage: 50 MILLIGRAM/SQ. METER DAYS 1?5 OF WEEK 1 AND DAYS 1 AND 2 OF WEEK 2 OF EACH CYCLE
     Route: 058
     Dates: start: 20200331, end: 20200408
  5. CLEXANE [Concomitant]
     Active Substance: ENOXAPARIN SODIUM
     Indication: PROPHYLAXIS
     Dosage: 1.6 MILLIGRAM
     Route: 048
     Dates: start: 20191121
  6. ONDANSETRON [Concomitant]
     Active Substance: ONDANSETRON
     Indication: VOMITING
     Dosage: 4 MILLIGRAM
     Route: 048
     Dates: start: 20191021
  7. COTRIM [Concomitant]
     Active Substance: SULFAMETHOXAZOLE\TRIMETHOPRIM
     Indication: ANTIBIOTIC PROPHYLAXIS
     Dosage: 960 MILLIGRAM
     Route: 048
     Dates: start: 20191021
  8. PRONTORAL [Concomitant]
     Indication: INFECTION PROPHYLAXIS
     Dosage: 14 MILLILITER
     Route: 065
     Dates: start: 20190801
  9. CITALOPRAM [Concomitant]
     Active Substance: CITALOPRAM HYDROBROMIDE
     Indication: DEPRESSION
     Dosage: 20 5MILLIGRAM
     Route: 048
     Dates: start: 2017
  10. CITALOPRAM [Concomitant]
     Active Substance: CITALOPRAM HYDROBROMIDE
     Dosage: 1.75 5MILLIGRAM
     Route: 048
     Dates: start: 2017
  11. PANTOZOL [Concomitant]
     Active Substance: PANTOPRAZOLE SODIUM
     Indication: PROPHYLAXIS
     Dosage: 40 MILLIGRAM
     Route: 048
     Dates: start: 2017
  12. METOPROLOL. [Concomitant]
     Active Substance: METOPROLOL
     Indication: HYPERTENSION
     Dosage: 23.75 MILLIGRAM
     Route: 048
     Dates: start: 2017
  13. AZACITIDINE. [Suspect]
     Active Substance: AZACITIDINE
     Indication: MYELODYSPLASTIC SYNDROME
     Dosage: 75 MILLIGRAM/SQ. METER DAYS 1?5 OF WEEK 1 AND DAYS 1 AND 2 OF WEEK 2 OF EACH CYCLE
     Route: 058
     Dates: start: 20191021, end: 20200225
  14. VENETOCLAX. [Concomitant]
     Active Substance: VENETOCLAX
     Indication: MYELODYSPLASTIC SYNDROME
     Dosage: 400 MILLIGRAM
     Route: 048
     Dates: start: 20191021
  15. FOLIC ACID. [Concomitant]
     Active Substance: FOLIC ACID
     Indication: PROPHYLAXIS
     Dosage: 5 5MILLIGRAM
     Route: 048
     Dates: start: 20190801

REACTIONS (2)
  - Haematuria [Recovered/Resolved]
  - Bladder neoplasm [Recovered/Resolved]

NARRATIVE: CASE EVENT DATE: 20200513
